FAERS Safety Report 15634685 (Version 3)
Quarter: 2018Q4

REPORT INFORMATION
  Report Type: Report from Study
  Country: US (occurrence: US)
  Receive Date: 20181119
  Receipt Date: 20181213
  Transmission Date: 20190205
  Serious: Yes (Hospitalization, Other)
  Sender: FDA-Public Use
  Company Number: US-ACTELION-A-NJ2013-85443

PATIENT
  Age: 57 Year
  Sex: Female
  Weight: 66.21 kg

DRUGS (19)
  1. CALCIUM CARBONATE. [Concomitant]
     Active Substance: CALCIUM CARBONATE
  2. NEURONTIN [Concomitant]
     Active Substance: GABAPENTIN
  3. VELETRI [Suspect]
     Active Substance: EPOPROSTENOL
     Dosage: 77 NG/KG, PER MIN
     Route: 042
  4. SILDENAFIL. [Concomitant]
     Active Substance: SILDENAFIL
  5. ADCIRCA [Concomitant]
     Active Substance: TADALAFIL
  6. RANITIDINE. [Concomitant]
     Active Substance: RANITIDINE
  7. VELETRI [Suspect]
     Active Substance: EPOPROSTENOL
     Indication: PULMONARY ARTERIAL HYPERTENSION
     Dosage: 91 NG/KG, PER MIN
     Route: 042
     Dates: start: 20110927
  8. COUMADIN [Concomitant]
     Active Substance: WARFARIN SODIUM
  9. CLINDAMYCIN. [Concomitant]
     Active Substance: CLINDAMYCIN
  10. PROMETHAZINE [Concomitant]
     Active Substance: PROMETHAZINE\PROMETHAZINE HYDROCHLORIDE
  11. FLONASE [Concomitant]
     Active Substance: FLUTICASONE PROPIONATE
  12. LASIX [Concomitant]
     Active Substance: FUROSEMIDE
  13. IMODIUM [Concomitant]
     Active Substance: LOPERAMIDE HYDROCHLORIDE
  14. KLOR-CON [Concomitant]
     Active Substance: POTASSIUM CHLORIDE
  15. VELETRI [Suspect]
     Active Substance: EPOPROSTENOL
     Dosage: 73 NG/KG, PER MIN
     Route: 042
     Dates: start: 20110913
  16. ASCORBIC ACID. [Concomitant]
     Active Substance: ASCORBIC ACID
  17. AMLODIPINE [Concomitant]
     Active Substance: AMLODIPINE BESYLATE
  18. NORVASC [Concomitant]
     Active Substance: AMLODIPINE BESYLATE
  19. ERGOCALCIFEROL. [Concomitant]
     Active Substance: ERGOCALCIFEROL

REACTIONS (23)
  - Pyrexia [Recovered/Resolved]
  - Diarrhoea [Unknown]
  - Blood culture positive [Recovered/Resolved]
  - Catheter site infection [Recovered/Resolved]
  - Fluid overload [Unknown]
  - Catheter site haemorrhage [Unknown]
  - Oedema peripheral [Unknown]
  - Serratia test positive [Recovered/Resolved]
  - Hepatomegaly [Unknown]
  - Fluid retention [Unknown]
  - Device occlusion [Unknown]
  - Sepsis [Recovered/Resolved]
  - Catheter site erythema [Recovered/Resolved]
  - Chills [Recovered/Resolved]
  - White blood cell count increased [Recovered/Resolved]
  - Transplant evaluation [Unknown]
  - Device related sepsis [Unknown]
  - Bacteraemia [Recovered/Resolved]
  - Device related infection [Recovered/Resolved]
  - Catheter site inflammation [Recovered/Resolved]
  - Catheter management [Recovered/Resolved]
  - Dyspnoea exertional [Unknown]
  - Palpitations [Unknown]

NARRATIVE: CASE EVENT DATE: 201709
